FAERS Safety Report 8231768-4 (Version None)
Quarter: 2012Q1

REPORT INFORMATION
  Report Type: 
  Country: None (occurrence: None)
  Receive Date: 20120323
  Receipt Date: 20120309
  Transmission Date: 20120608
  Serious: Yes (Other)
  Sender: FDA-Public Use
  Company Number: AU-WATSON-2012-05131

PATIENT
  Age: 25 Year
  Sex: Male

DRUGS (3)
  1. SERTRALINE HYDROCHLORIDE [Suspect]
     Indication: PRODUCT USED FOR UNKNOWN INDICATION
     Route: 048
  2. HYPERICUM                          /01166801/ [Suspect]
     Indication: PRODUCT USED FOR UNKNOWN INDICATION
  3. ESCITALOPRAM [Suspect]
     Indication: PRODUCT USED FOR UNKNOWN INDICATION

REACTIONS (8)
  - DEPRESSION [None]
  - PARANOIA [None]
  - AKATHISIA [None]
  - DRUG INTERACTION [None]
  - AGGRESSION [None]
  - SUICIDAL IDEATION [None]
  - PHYSICAL ASSAULT [None]
  - EJACULATION FAILURE [None]
